FAERS Safety Report 6142225-3 (Version None)
Quarter: 2009Q2

REPORT INFORMATION
  Report Type: 
  Country: None (occurrence: None)
  Receive Date: 20090403
  Receipt Date: 20070326
  Transmission Date: 20091009
  Serious: Yes (Hospitalization)
  Sender: FDA-Public Use
  Company Number: US-ASTRAZENECA-2006UW20952

PATIENT
  Age: 13321 Day
  Sex: Female
  Weight: 112.5 kg

DRUGS (24)
  1. SEROQUEL [Suspect]
     Route: 048
     Dates: start: 20060505
  2. AVAPRO [Concomitant]
  3. CLONIDINE HCL [Concomitant]
  4. EFFEXOR [Concomitant]
  5. AVANDIA [Concomitant]
  6. ALBUTEROL [Concomitant]
  7. AUGMENTIN '125' [Concomitant]
  8. PERCOCET [Concomitant]
  9. ZANTAC [Concomitant]
  10. DEMEROL [Concomitant]
  11. ZOFRAN [Concomitant]
  12. PROTONIX [Concomitant]
  13. NOVOLIN R [Concomitant]
  14. IPRATROPIUM BROMIDE [Concomitant]
  15. NITRO BID 2% [Concomitant]
  16. TRAMADOL [Concomitant]
  17. PHENERGAN [Concomitant]
  18. BENADRYL [Concomitant]
  19. DIOVAN [Concomitant]
  20. HYDROCHLOROT TAB [Concomitant]
  21. PREVPAC [Concomitant]
  22. GABAPENTIN [Concomitant]
  23. POTASSIUM CHLORIDE [Concomitant]
  24. BENICAR HCT [Concomitant]

REACTIONS (9)
  - APPENDICITIS [None]
  - DIABETES MELLITUS [None]
  - GASTROOESOPHAGEAL REFLUX DISEASE [None]
  - HYPERTENSION [None]
  - MICROCYTIC ANAEMIA [None]
  - PERITONEAL ADHESIONS [None]
  - SPINAL OSTEOARTHRITIS [None]
  - TONSILLAR HYPERTROPHY [None]
  - URTICARIA [None]
